FAERS Safety Report 24314435 (Version 1)
Quarter: 2024Q3

REPORT INFORMATION
  Report Type: Spontaneous
  Country: CN (occurrence: CN)
  Receive Date: 20240913
  Receipt Date: 20240913
  Transmission Date: 20241017
  Serious: Yes (Other)
  Sender: STRIDES
  Company Number: CN-STRIDES ARCOLAB LIMITED-2024SP011618

PATIENT
  Age: 52 Year
  Sex: Female

DRUGS (9)
  1. PREDNISOLONE [Suspect]
     Active Substance: PREDNISOLONE
     Indication: Langerhans^ cell histiocytosis
     Dosage: 60 MILLIGRAM, QD (MAINTENANCE CHEMOTHERAPY; ADMINISTERED ON DAYS 1-5 OF THE TREATMENT CYCLE)
     Route: 065
  2. ETOPOSIDE [Suspect]
     Active Substance: ETOPOSIDE
     Indication: Langerhans^ cell histiocytosis
     Dosage: 0.1 GRAM PER SQUARE METRE, CYCLICAL (ADMINISTERED ON DAYS 1-4 OF THE TREATMENT CYCLE)
     Route: 065
     Dates: start: 20230717
  3. CYCLOPHOSPHAMIDE [Suspect]
     Active Substance: CYCLOPHOSPHAMIDE
     Indication: Langerhans^ cell histiocytosis
     Dosage: 750 MILLIGRAM/SQ. METER, CYCLICAL (ADMINISTERED ON DAY 1 OF THE TREATMENT CYCLE)
     Route: 065
     Dates: start: 20230717
  4. DEXAMETHASONE [Suspect]
     Active Substance: DEXAMETHASONE
     Indication: Langerhans^ cell histiocytosis
     Dosage: 15 MILLIGRAM, QD (ADMINISTERED ON DAYS 1-5 OF THE TREATMENT CYCLE)
     Route: 065
     Dates: start: 20230717
  5. VINDESINE [Suspect]
     Active Substance: VINDESINE
     Indication: Langerhans^ cell histiocytosis
     Dosage: 3 MILLIGRAM/SQ. METER, CYCLICAL (ADMINISTERED ON DAY 1 OF THE TREATMENT CYCLE)
     Route: 065
     Dates: start: 20230717
  6. VINDESINE [Suspect]
     Active Substance: VINDESINE
     Dosage: 4 MILLIGRAM, QD (MAINTENANCE CHEMOTHERAPY; ADMINISTERED ON DAYS 1-5 OF THE TREATMENT CYCLE)
     Route: 065
  7. INSULIN ASPART [Suspect]
     Active Substance: INSULIN ASPART
     Indication: Type 2 diabetes mellitus
     Dosage: 10 UNITS, BID (10 U (ONCE IN THE MORNING AND ONCE IN THE EVENING)
     Route: 065
  8. DESMOPRESSIN ACETATE [Suspect]
     Active Substance: DESMOPRESSIN ACETATE
     Indication: Diabetes insipidus
     Dosage: UNK
     Route: 048
  9. LEVOTHYROXINE SODIUM [Suspect]
     Active Substance: LEVOTHYROXINE SODIUM
     Indication: Hypothyroidism
     Dosage: UNK
     Route: 048

REACTIONS (4)
  - Myelosuppression [Recovered/Resolved]
  - Therapy partial responder [Unknown]
  - Localised infection [Recovered/Resolved]
  - Off label use [Unknown]
